FAERS Safety Report 20999358 (Version 2)
Quarter: 2022Q3

REPORT INFORMATION
  Report Type: Spontaneous
  Country: US (occurrence: US)
  Receive Date: 20220623
  Receipt Date: 20220711
  Transmission Date: 20221027
  Serious: Yes (Hospitalization)
  Sender: FDA-Public Use
  Company Number: US-TEVA-2022-US-2047653

PATIENT
  Age: 45 Year
  Sex: Female

DRUGS (3)
  1. CLOZAPINE [Suspect]
     Active Substance: CLOZAPINE
     Indication: Schizophrenia
     Dosage: 350 MILLIGRAM DAILY; OVER 4 WEEKS
     Route: 065
  2. CLONAZEPAM [Concomitant]
     Active Substance: CLONAZEPAM
     Indication: Schizophrenia
     Dosage: 2 MILLIGRAM DAILY;
     Route: 065
  3. VALPROATE [Concomitant]
     Active Substance: VALPROIC ACID
     Indication: Schizophrenia
     Dosage: 1000 MILLIGRAM DAILY;
     Route: 065

REACTIONS (5)
  - Lethargy [Recovering/Resolving]
  - Sedation [Recovering/Resolving]
  - Salivary hypersecretion [Recovering/Resolving]
  - Gait disturbance [Recovered/Resolved]
  - Toxicity to various agents [Unknown]
